FAERS Safety Report 13224572 (Version 1)
Quarter: 2017Q1

REPORT INFORMATION
  Report Type: Spontaneous
  Country: IT (occurrence: IT)
  Receive Date: 20170213
  Receipt Date: 20170213
  Transmission Date: 20170428
  Serious: Yes (Other)
  Sender: FDA-Public Use
  Company Number: IT-BRISTOL-MYERS SQUIBB COMPANY-BMS-2017-008670

PATIENT
  Age: 57 Year
  Sex: Female
  Weight: 63 kg

DRUGS (4)
  1. FLECAINIDE RATIOPHARM [Concomitant]
     Indication: ATRIAL FIBRILLATION
     Dosage: 100 MG, UNK
     Route: 048
     Dates: start: 20150901
  2. PANTORC [Concomitant]
     Active Substance: PANTOPRAZOLE SODIUM
     Indication: GASTRIC DISORDER
     Dosage: 20 MG, UNK
     Route: 048
     Dates: start: 20150901
  3. COUMADIN [Suspect]
     Active Substance: WARFARIN SODIUM
     Indication: ATRIAL FIBRILLATION
     Dosage: 5 MG, QD
     Route: 048
     Dates: start: 20150901
  4. SOTALOL MYLAN [Concomitant]
     Indication: SUPRAVENTRICULAR TACHYCARDIA
     Dosage: 80 MG, UNK
     Route: 048
     Dates: start: 20150901

REACTIONS (3)
  - Haematoma [Recovered/Resolved]
  - Haematoma evacuation [Unknown]
  - Fall [Unknown]

NARRATIVE: CASE EVENT DATE: 20170102
